FAERS Safety Report 12929877 (Version 2)
Quarter: 2017Q1

REPORT INFORMATION
  Report Type: Report from Study
  Country: FR (occurrence: FR)
  Receive Date: 20161110
  Receipt Date: 20170310
  Transmission Date: 20170428
  Serious: Yes (Other)
  Sender: FDA-Public Use
  Company Number: FR-BAYER-2016-214807

PATIENT
  Age: 51 Year
  Sex: Female

DRUGS (1)
  1. JAYDESS [Suspect]
     Active Substance: LEVONORGESTREL
     Dosage: 14 MCG/24HR, CONT
     Route: 015
     Dates: start: 20160804, end: 20160926

REACTIONS (3)
  - Hydrosalpinx [None]
  - Adnexa uteri cyst [None]
  - Haematosalpinx [None]

NARRATIVE: CASE EVENT DATE: 20160926
